FAERS Safety Report 8277233-X (Version None)
Quarter: 2012Q2

REPORT INFORMATION
  Report Type: 
  Country: None (occurrence: None)
  Receive Date: 20120412
  Receipt Date: 20110610
  Transmission Date: 20120825
  Serious: Yes (Other)
  Sender: FDA-Public Use
  Company Number: US-GLAXOSMITHKLINE-A0934200A

PATIENT
  Age: 25 Year
  Sex: Female

DRUGS (1)
  1. AVANDIA [Suspect]
     Indication: DIABETES MELLITUS
     Route: 048
     Dates: end: 20080101

REACTIONS (3)
  - CEREBROVASCULAR ACCIDENT [None]
  - TRICUSPID VALVE DISEASE [None]
  - CARDIAC DISORDER [None]
